FAERS Safety Report 9693084 (Version 1)
Quarter: 2013Q4

REPORT INFORMATION
  Report Type: Spontaneous
  Country: BR (occurrence: BR)
  Receive Date: 20131118
  Receipt Date: 20131118
  Transmission Date: 20140711
  Serious: Yes (Other)
  Sender: FDA-Public Use
  Company Number: ALCN2013BR005665

PATIENT
  Age: 52 Year
  Sex: Female

DRUGS (3)
  1. TRAVATAN BAC-FREE [Suspect]
     Indication: GLAUCOMA
     Dosage: 1 GTT, QD
     Route: 047
  2. AZOPT [Suspect]
     Indication: GLAUCOMA
     Dosage: 1 DF, UNK
     Route: 047
  3. TIMOLOL [Suspect]
     Indication: GLAUCOMA
     Dosage: 1 DF, UNK
     Route: 047

REACTIONS (1)
  - Visual field defect [Not Recovered/Not Resolved]
